FAERS Safety Report 18403643 (Version 1)
Quarter: 2020Q4

REPORT INFORMATION
  Report Type: Spontaneous
  Country: CN (occurrence: CN)
  Receive Date: 20201020
  Receipt Date: 20201020
  Transmission Date: 20210114
  Serious: Yes (Hospitalization)
  Sender: FDA-Public Use
  Company Number: CN-AXELLIA-003429

PATIENT
  Age: 68 Year
  Sex: Male

DRUGS (3)
  1. POLYMYXIN B. [Suspect]
     Active Substance: POLYMYXIN B
     Indication: KLEBSIELLA INFECTION
     Dosage: 500,000 UNITS, INTRAVENOUS, Q 12 HOURS
     Route: 042
  2. MEROPENEM. [Concomitant]
     Active Substance: MEROPENEM
     Indication: KLEBSIELLA INFECTION
     Dosage: 2 G, INTRAVENOUS, Q 8 HOURS
     Route: 042
  3. TIGECYCLINE. [Concomitant]
     Active Substance: TIGECYCLINE
     Indication: KLEBSIELLA INFECTION
     Dosage: 100 MG, INTRAVENOUS, Q 12 HOURS
     Route: 042

REACTIONS (1)
  - Skin hyperpigmentation [Recovered/Resolved]
